FAERS Safety Report 4659729-2 (Version None)
Quarter: 2005Q2

REPORT INFORMATION
  Report Type: 
  Country: None (occurrence: None)
  Receive Date: 20050420
  Receipt Date: 20050321
  Transmission Date: 20051028
  Serious: No
  Sender: FDA-Public Use
  Company Number: PHEH2005US03264

PATIENT
  Age: 77 Year
  Sex: Male

DRUGS (3)
  1. ENABLEX [Suspect]
     Indication: URGE INCONTINENCE
     Dosage: 7.5 MG, OT, ORAL
     Route: 048
     Dates: start: 20050314
  2. FOSAMAX [Concomitant]
  3. CHEMOTHERAPEUTICS                 OTHER (CHERMOTHERAPEUTIC) [Concomitant]

REACTIONS (2)
  - DRUG INEFFECTIVE [None]
  - DRY MOUTH [None]
